FAERS Safety Report 6466264-8 (Version None)
Quarter: 2009Q4

REPORT INFORMATION
  Report Type: 
  Country: None (occurrence: None)
  Receive Date: 20091202
  Receipt Date: 20091123
  Transmission Date: 20100525
  Serious: Yes (Disabling, Other)
  Sender: FDA-Public Use
  Company Number: PHEH2009US16487

PATIENT
  Sex: Male

DRUGS (2)
  1. ZOMETA [Suspect]
     Dosage: UNK
     Dates: start: 20050401, end: 20090501
  2. REVLIMID [Concomitant]

REACTIONS (6)
  - BONE DISORDER [None]
  - DIARRHOEA [None]
  - INFLUENZA LIKE ILLNESS [None]
  - MUSCULAR WEAKNESS [None]
  - OSTEONECROSIS [None]
  - PAIN [None]
